FAERS Safety Report 9669279 (Version 2)
Quarter: 2013Q4

REPORT INFORMATION
  Report Type: Spontaneous
  Country: US (occurrence: US)
  Receive Date: 20131105
  Receipt Date: 20131204
  Transmission Date: 20140711
  Serious: No
  Sender: FDA-Public Use
  Company Number: US-PFIZER INC-2013314108

PATIENT
  Age: 62 Year
  Sex: Male

DRUGS (12)
  1. XELJANZ [Suspect]
     Indication: RHEUMATOID ARTHRITIS
     Dosage: 5 MG, 2X/DAY
     Route: 048
     Dates: start: 20130329
  2. CO-Q-10 [Concomitant]
     Dosage: UNK
  3. DILTIAZEM [Concomitant]
     Dosage: UNK
  4. FOLIC ACID [Concomitant]
     Dosage: UNK
  5. METHOTREXATE [Concomitant]
     Dosage: UNK
  6. AZELASTINE [Concomitant]
     Dosage: UNK
  7. ENDOCET [Concomitant]
     Dosage: UNK
  8. TOPROL XL [Concomitant]
     Dosage: UNK
  9. LISINOPRIL [Concomitant]
     Dosage: UNK
  10. FLUTICASONE [Concomitant]
     Dosage: UNK
  11. PROMETHAZINE [Concomitant]
     Dosage: UNK
  12. CRESTOR [Concomitant]
     Dosage: UNK

REACTIONS (5)
  - Constipation [Unknown]
  - Pollakiuria [Unknown]
  - Blood triglycerides increased [Unknown]
  - Weight increased [Unknown]
  - Herpes zoster [Unknown]
